FAERS Safety Report 20357538 (Version 1)
Quarter: 2022Q1

REPORT INFORMATION
  Report Type: Spontaneous
  Country: US (occurrence: None)
  Receive Date: 20220120
  Receipt Date: 20220120
  Transmission Date: 20220423
  Serious: No
  Sender: FDA-Public Use
  Company Number: None

PATIENT

DRUGS (2)
  1. SOTROVIMAB [Suspect]
     Active Substance: SOTROVIMAB
  2. KEVZARA [Suspect]
     Active Substance: SARILUMAB

REACTIONS (3)
  - Transcription medication error [None]
  - Product name confusion [None]
  - Product name confusion [None]
